FAERS Safety Report 21642061 (Version 2)
Quarter: 2022Q4

REPORT INFORMATION
  Report Type: Spontaneous
  Country: PT (occurrence: PT)
  Receive Date: 20221125
  Receipt Date: 20221216
  Transmission Date: 20230112
  Serious: Yes (Death, Life-Threatening, Hospitalization, Disabling, Other)
  Sender: FDA-Public Use
  Company Number: PT-ASTELLAS-2022US038276

PATIENT
  Age: 92 Year
  Sex: Female

DRUGS (2)
  1. AMOXICILLIN\CLAVULANIC ACID [Suspect]
     Active Substance: AMOXICILLIN\CLAVULANIC ACID
     Indication: Cystitis escherichia
     Dosage: UNK
     Route: 065
  2. AMOXICILLIN\CLAVULANIC ACID [Suspect]
     Active Substance: AMOXICILLIN\CLAVULANIC ACID
     Indication: Cystitis

REACTIONS (8)
  - Toxic epidermal necrolysis [Fatal]
  - Erythema [Fatal]
  - Pruritus [Fatal]
  - Respiratory failure [Fatal]
  - Pneumonia [Fatal]
  - Cardiac failure acute [Recovered/Resolved]
  - Epidermolysis [Recovered/Resolved]
  - Cardiac failure chronic [Unknown]
